FAERS Safety Report 9379855 (Version 4)
Quarter: 2021Q4

REPORT INFORMATION
  Report Type: Report from Study
  Country: US (occurrence: US)
  Receive Date: 20130627
  Receipt Date: 20211217
  Transmission Date: 20220303
  Serious: Yes (Hospitalization)
  Sender: FDA-Public Use
  Company Number: None

PATIENT
  Age: 17 Year
  Sex: Female
  Weight: 63 kg

DRUGS (2)
  1. BRENTUXIMAB VEDOTIN [Suspect]
     Active Substance: BRENTUXIMAB VEDOTIN
     Indication: Hodgkin^s disease
     Dosage: 1.8 MG/KG, Q21D
     Route: 042
     Dates: start: 20130430, end: 20130430
  2. GEMCITABINE [Suspect]
     Active Substance: GEMCITABINE
     Indication: Hodgkin^s disease
     Dosage: 1000 MG, Q21D
     Route: 042
     Dates: start: 20130430, end: 20130430

REACTIONS (5)
  - White blood cell count decreased [Recovered/Resolved]
  - Adrenal insufficiency [Recovering/Resolving]
  - Hypotension [Recovered/Resolved]
  - Anaemia [Recovered/Resolved]
  - Lymphocyte count decreased [Recovered/Resolved]

NARRATIVE: CASE EVENT DATE: 20130502
